FAERS Safety Report 25946321 (Version 1)
Quarter: 2025Q4

REPORT INFORMATION
  Report Type: Spontaneous
  Country: US (occurrence: US)
  Receive Date: 20251022
  Receipt Date: 20251022
  Transmission Date: 20260119
  Serious: No
  Sender: AMGEN
  Company Number: US-AMGEN-USASP2025207698

PATIENT
  Age: 58 Year
  Sex: Female

DRUGS (5)
  1. AIMOVIG [Suspect]
     Active Substance: ERENUMAB-AOOE
     Indication: Migraine
     Dosage: 70 MILLIGRAM, QMO
     Route: 058
     Dates: start: 201902
  2. IMITREX [Concomitant]
     Active Substance: SUMATRIPTAN SUCCINATE
     Indication: Migraine
     Dosage: UNK, AS NECESSARY
     Route: 058
  3. IMITREX [Concomitant]
     Active Substance: SUMATRIPTAN SUCCINATE
     Route: 058
  4. INDOCIN [Concomitant]
     Active Substance: INDOMETHACIN
     Indication: Migraine
     Dosage: UNK, AS NECESSARY
     Route: 058
  5. INDOCIN [Concomitant]
     Active Substance: INDOMETHACIN
     Route: 058

REACTIONS (4)
  - Anxiety [Recovered/Resolved]
  - Migraine [Recovered/Resolved]
  - Inappropriate schedule of product administration [Unknown]
  - Device use error [Unknown]

NARRATIVE: CASE EVENT DATE: 20251013
